FAERS Safety Report 22391112 (Version 6)
Quarter: 2023Q4

REPORT INFORMATION
  Report Type: Report from Study
  Country: FR (occurrence: FR)
  Receive Date: 20230601
  Receipt Date: 20231124
  Transmission Date: 20240110
  Serious: Yes (Other)
  Sender: FDA-Public Use
  Company Number: FR-BEH-2023158114

PATIENT
  Age: 60 Year
  Sex: Female
  Weight: 81 kg

DRUGS (2)
  1. HIZENTRA [Suspect]
     Active Substance: HUMAN IMMUNOGLOBULIN G
     Indication: Chronic inflammatory demyelinating polyradiculoneuropathy
     Dosage: 16 GRAM
     Route: 058
     Dates: start: 20220729, end: 20230309
  2. LYRICA [Concomitant]
     Active Substance: PREGABALIN
     Dosage: UNK, BID

REACTIONS (9)
  - Drug ineffective [Recovered/Resolved]
  - Chronic inflammatory demyelinating polyradiculoneuropathy [Unknown]
  - Balance disorder [Unknown]
  - Hypoaesthesia [Unknown]
  - Pain [Unknown]
  - Balance disorder [Unknown]
  - Hypoaesthesia [Unknown]
  - Paraesthesia [Unknown]
  - Therapeutic product effect incomplete [Recovered/Resolved]

NARRATIVE: CASE EVENT DATE: 20230101
